FAERS Safety Report 15712227 (Version 1)
Quarter: 2018Q4

REPORT INFORMATION
  Report Type: Spontaneous
  Country: US (occurrence: US)
  Receive Date: 20181211
  Receipt Date: 20181211
  Transmission Date: 20190205
  Serious: Yes (Other)
  Sender: FDA-Public Use
  Company Number: None

PATIENT
  Age: 28 Year
  Sex: Female
  Weight: 58.9 kg

DRUGS (1)
  1. BAXDELA [Suspect]
     Active Substance: DELAFLOXACIN MEGLUMINE
     Indication: STAPHYLOCOCCAL INFECTION
     Route: 048
     Dates: start: 20181016, end: 20181019

REACTIONS (1)
  - Arthralgia [None]

NARRATIVE: CASE EVENT DATE: 20181018
